FAERS Safety Report 15827163 (Version 5)
Quarter: 2021Q1

REPORT INFORMATION
  Report Type: Spontaneous
  Country: PT (occurrence: PT)
  Receive Date: 20190115
  Receipt Date: 20210112
  Transmission Date: 20210419
  Serious: Yes (Hospitalization, Other)
  Sender: FDA-Public Use
  Company Number: PHHY2019PT003140

PATIENT

DRUGS (6)
  1. ACETYLSALICYLIC ACID [Suspect]
     Active Substance: ASPIRIN
     Indication: FOETAL EXPOSURE DURING PREGNANCY
     Dosage: UNK
     Route: 064
  2. INFLIXIMAB [Suspect]
     Active Substance: INFLIXIMAB
     Indication: FOETAL EXPOSURE DURING PREGNANCY
     Dosage: 1 DF, CYCLIC (1 CYCIC AT 9 WEEKS)
     Route: 064
  3. ENOXAPARIN SODIUM. [Suspect]
     Active Substance: ENOXAPARIN SODIUM
     Indication: FOETAL EXPOSURE DURING PREGNANCY
     Dosage: UNK
     Route: 064
  4. PREDNISOLONE. [Suspect]
     Active Substance: PREDNISOLONE
     Indication: FOETAL EXPOSURE DURING PREGNANCY
     Dosage: 10 MG
     Route: 064
  5. INFLIXIMAB [Suspect]
     Active Substance: INFLIXIMAB
     Dosage: 1 DF, CYCLIC (1 CYCLIC AT 17 WEEKS)
     Route: 064
  6. CERTOLIZUMAB PEGOL [Suspect]
     Active Substance: CERTOLIZUMAB PEGOL
     Indication: FOETAL EXPOSURE DURING PREGNANCY
     Dosage: 1 DF, CYCLIC (1 CYCLIC, AT 24 WEEKS)
     Route: 064

REACTIONS (4)
  - Foetal exposure during pregnancy [Unknown]
  - Foetal growth restriction [Unknown]
  - Low birth weight baby [Unknown]
  - Premature baby [Unknown]
